FAERS Safety Report 17148113 (Version 4)
Quarter: 2021Q3

REPORT INFORMATION
  Report Type: Spontaneous
  Country: US (occurrence: US)
  Receive Date: 20191212
  Receipt Date: 20210817
  Transmission Date: 20211014
  Serious: Yes (Other)
  Sender: FDA-Public Use
  Company Number: NVSC2019US066086

PATIENT
  Age: 25 Year
  Sex: Male

DRUGS (1)
  1. COSENTYX [Suspect]
     Active Substance: SECUKINUMAB
     Indication: PRODUCT USED FOR UNKNOWN INDICATION
     Dosage: 300 MG/KG, Q4W
     Route: 065
     Dates: start: 20190424

REACTIONS (2)
  - Cellulitis [Unknown]
  - Otitis media [Unknown]

NARRATIVE: CASE EVENT DATE: 201905
